FAERS Safety Report 4454494-6 (Version None)
Quarter: 2004Q3

REPORT INFORMATION
  Report Type: 
  Country: None (occurrence: None)
  Receive Date: 20040917
  Receipt Date: 20040917
  Transmission Date: 20050211
  Serious: Yes (Death)
  Sender: FDA-Public Use
  Company Number: None

PATIENT
  Sex: Male
  Weight: 86.1834 kg

DRUGS (2)
  1. ZOLOFT [Suspect]
     Indication: CEREBROVASCULAR ACCIDENT
     Dosage: 1 DAY ORAL
     Route: 048
     Dates: start: 20031101, end: 20031112
  2. ZOLOFT [Suspect]
     Indication: DEPRESSION
     Dosage: 1 DAY ORAL
     Route: 048
     Dates: start: 20031101, end: 20031112

REACTIONS (1)
  - COMPLETED SUICIDE [None]
